FAERS Safety Report 10654295 (Version 1)
Quarter: 2014Q4

REPORT INFORMATION
  Report Type: Spontaneous
  Country: US (occurrence: None)
  Receive Date: 20141215
  Receipt Date: 20141215
  Transmission Date: 20150529
  Serious: Yes (Life-Threatening, Hospitalization, Other)
  Sender: FDA-Public Use
  Company Number: None

PATIENT
  Age: 46 Year
  Sex: Female

DRUGS (1)
  1. LO LOESTRIN FE [Suspect]
     Active Substance: ETHINYL ESTRADIOL\NORETHINDRONE ACETATE
     Indication: MENSTRUAL CYCLE MANAGEMENT
     Dosage: 1 PILL
     Route: 048
     Dates: start: 20141106, end: 20141125

REACTIONS (6)
  - Cerebrovascular accident [None]
  - Feeling abnormal [None]
  - Dizziness [None]
  - Feeling cold [None]
  - Limb discomfort [None]
  - Paraesthesia oral [None]

NARRATIVE: CASE EVENT DATE: 20141125
